FAERS Safety Report 7827982-X (Version None)
Quarter: 2011Q4

REPORT INFORMATION
  Report Type: 
  Country: None (occurrence: None)
  Receive Date: 20111020
  Receipt Date: 20111017
  Transmission Date: 20120403
  Serious: Yes (Death)
  Sender: FDA-Public Use
  Company Number: US-ACTELION-A-NJ2011-55481

PATIENT

DRUGS (5)
  1. EPOPROSTENOL SODIUM [Suspect]
     Indication: PULMONARY ARTERIAL HYPERTENSION
     Dosage: 15 NG/KG, PER MIN
     Route: 041
     Dates: start: 20110113, end: 20111015
  2. SILDENAFIL [Concomitant]
  3. LASIX [Concomitant]
  4. TRACLEER [Suspect]
     Indication: PULMONARY ARTERIAL HYPERTENSION
     Dosage: UNK
     Route: 048
     Dates: start: 20080729, end: 20111015
  5. COUMADIN [Concomitant]

REACTIONS (2)
  - DEATH [None]
  - PLATELET COUNT DECREASED [None]
